FAERS Safety Report 16683166 (Version 1)
Quarter: 2019Q3

REPORT INFORMATION
  Report Type: Spontaneous
  Country: GB (occurrence: GB)
  Receive Date: 20190808
  Receipt Date: 20190808
  Transmission Date: 20191004
  Serious: Yes (Other)
  Sender: FDA-Public Use
  Company Number: GB-TEVA-2019-GB-1090111

PATIENT
  Age: 40 Year
  Sex: Male
  Weight: 100 kg

DRUGS (2)
  1. CLARITHROMYCIN CITRATE [Suspect]
     Active Substance: CLARITHROMYCIN CITRATE
     Indication: INFECTED DERMAL CYST
     Dosage: 250MG TWICE A DAY? (UNCERTAIN, AS DISPOSED OF PACKET)
     Route: 048
     Dates: start: 20190610, end: 20190616
  2. CETIRIZINE DIHYDROCHLORIDE [Concomitant]
     Active Substance: CETIRIZINE HYDROCHLORIDE

REACTIONS (5)
  - Insomnia [Recovered/Resolved]
  - Hyperhidrosis [Recovered/Resolved]
  - Drug ineffective [Unknown]
  - Ageusia [Recovered/Resolved]
  - Dysgeusia [Recovered/Resolved]
